FAERS Safety Report 21345592 (Version 1)
Quarter: 2022Q3

REPORT INFORMATION
  Report Type: Spontaneous
  Country: CN (occurrence: CN)
  Receive Date: 20220916
  Receipt Date: 20220916
  Transmission Date: 20221026
  Serious: Yes (Hospitalization, Other)
  Sender: FDA-Public Use
  Company Number: CN-009507513-2209CHN005880

PATIENT
  Age: 58 Year
  Sex: Male

DRUGS (3)
  1. PEMBROLIZUMAB [Suspect]
     Active Substance: PEMBROLIZUMAB
     Indication: Oesophageal squamous cell carcinoma stage IV
     Dosage: 200-MG INJECTION D1 3W FOR ONE CYCLE
     Dates: start: 202105, end: 2021
  2. PACLITAXEL [Concomitant]
     Active Substance: PACLITAXEL
     Indication: Oesophageal squamous cell carcinoma stage IV
     Dosage: 210-MG D1 3W
     Route: 041
     Dates: start: 202102
  3. LOBAPLATIN [Concomitant]
     Active Substance: LOBAPLATIN
     Indication: Oesophageal squamous cell carcinoma stage IV
     Dosage: 60-MG D1 3W
     Route: 041
     Dates: start: 202102

REACTIONS (3)
  - Immune-mediated hepatic disorder [Unknown]
  - Adrenocortical insufficiency acute [Recovered/Resolved]
  - Secondary adrenocortical insufficiency [Recovered/Resolved]

NARRATIVE: CASE EVENT DATE: 20210101
